FAERS Safety Report 7229703-0 (Version None)
Quarter: 2011Q1

REPORT INFORMATION
  Report Type: 
  Country: None (occurrence: None)
  Receive Date: 20110117
  Receipt Date: 20110107
  Transmission Date: 20110831
  Serious: Yes (Other)
  Sender: FDA-Public Use
  Company Number: PHHY2011JP01773

PATIENT

DRUGS (2)
  1. NEORAL [Suspect]
     Dosage: 75 MG, QD
  2. NEORAL [Suspect]
     Indication: AUTOIMMUNE HEPATITIS
     Dosage: 120 MG, DAILY IN TWO DIVIDED DOSES

REACTIONS (2)
  - HEPATIC FAILURE [None]
  - IMMUNOSUPPRESSANT DRUG LEVEL INCREASED [None]
